FAERS Safety Report 7619741-8 (Version None)
Quarter: 2011Q3

REPORT INFORMATION
  Report Type: 
  Country: None (occurrence: None)
  Receive Date: 20110719
  Receipt Date: 20110706
  Transmission Date: 20111222
  Serious: Yes (Hospitalization)
  Sender: FDA-Public Use
  Company Number: US-ENDO PHARMACEUTICALS INC.-ENDC20110097

PATIENT
  Age: 48 Year
  Sex: Male

DRUGS (4)
  1. OXYCODONE AND ACETAMINOPHEN [Suspect]
     Indication: PAIN
     Dosage: 10/325 MG
     Route: 048
  2. FLOMAX [Concomitant]
     Dosage: UNK
     Route: 065
  3. PRILOSEC [Concomitant]
     Dosage: UNK
     Route: 065
  4. KADIAN [Concomitant]
     Dosage: UNK
     Route: 065

REACTIONS (2)
  - GENERALISED OEDEMA [None]
  - VOMITING [None]
